FAERS Safety Report 8138788-9 (Version None)
Quarter: 2012Q1

REPORT INFORMATION
  Report Type: 
  Country: None (occurrence: None)
  Receive Date: 20120213
  Receipt Date: 20120207
  Transmission Date: 20120608
  Serious: Yes (Other)
  Sender: FDA-Public Use
  Company Number: ADR-2011-11089

PATIENT
  Age: 33 Year
  Sex: Male

DRUGS (1)
  1. BACLOFEN [Suspect]
     Indication: MULTIPLE SCLEROSIS
     Dosage: MCG, DAILY, INTRATHECAL
     Route: 037

REACTIONS (4)
  - INTRACRANIAL HYPOTENSION [None]
  - FLUID RETENTION [None]
  - IMPLANT SITE EFFUSION [None]
  - ABDOMINAL DISTENSION [None]
